FAERS Safety Report 16461495 (Version 1)
Quarter: 2019Q2

REPORT INFORMATION
  Report Type: Spontaneous
  Country: US (occurrence: US)
  Receive Date: 20190621
  Receipt Date: 20190621
  Transmission Date: 20190711
  Serious: No
  Sender: FDA-Public Use
  Company Number: US-DRREDDYS-USA/USA/19/0111055

PATIENT
  Age: 56 Year
  Sex: Male
  Weight: 77.27 kg

DRUGS (1)
  1. HABITROL [Suspect]
     Active Substance: NICOTINE
     Indication: EX-TOBACCO USER
     Route: 062
     Dates: start: 20190612

REACTIONS (3)
  - Incorrect dose administered [Unknown]
  - Treatment noncompliance [Unknown]
  - Expired product administered [Unknown]

NARRATIVE: CASE EVENT DATE: 20190612
